FAERS Safety Report 13999078 (Version 1)
Quarter: 2017Q3

REPORT INFORMATION
  Report Type: Spontaneous
  Country: JP (occurrence: JP)
  Receive Date: 20170922
  Receipt Date: 20170922
  Transmission Date: 20171128
  Serious: Yes (Other)
  Sender: FDA-Public Use
  Company Number: JP-TEVA-809659ROM

PATIENT
  Sex: Female

DRUGS (1)
  1. ACTONEL [Suspect]
     Active Substance: RISEDRONATE SODIUM
     Indication: PRODUCT USED FOR UNKNOWN INDICATION
     Dosage: 75 MILLIGRAM DAILY; 75 MG, QD
     Route: 048
     Dates: start: 201706

REACTIONS (4)
  - Back pain [Recovered/Resolved]
  - Pyrexia [Recovered/Resolved]
  - Hepatitis B surface antibody positive [Not Recovered/Not Resolved]
  - Arthralgia [Unknown]
